FAERS Safety Report 6439651-1 (Version None)
Quarter: 2009Q4

REPORT INFORMATION
  Report Type: 
  Country: None (occurrence: None)
  Receive Date: 20091113
  Receipt Date: 20091103
  Transmission Date: 20100525
  Serious: Yes (Other)
  Sender: FDA-Public Use
  Company Number: US-AMGEN-US373162

PATIENT
  Age: 9 Year
  Sex: Male
  Weight: 29 kg

DRUGS (7)
  1. ENBREL [Suspect]
     Indication: JUVENILE ARTHRITIS
     Route: 058
     Dates: start: 20090318, end: 20090429
  2. NOVOLOG [Concomitant]
     Route: 058
  3. LANTUS [Concomitant]
     Route: 058
  4. LORATADINE [Concomitant]
     Route: 048
  5. NAPROSYN [Concomitant]
     Route: 048
  6. DEPAKOTE [Concomitant]
     Route: 048
  7. ZONEGRAN [Concomitant]
     Route: 048

REACTIONS (1)
  - CONFUSIONAL STATE [None]
